FAERS Safety Report 25015754 (Version 1)
Quarter: 2025Q1

REPORT INFORMATION
  Report Type: Spontaneous
  Country: US (occurrence: US)
  Receive Date: 20250227
  Receipt Date: 20250227
  Transmission Date: 20250408
  Serious: No
  Sender: ROCHE
  Company Number: US-ROCHE-10000211417

PATIENT
  Sex: Female

DRUGS (6)
  1. RITUXAN [Suspect]
     Active Substance: RITUXIMAB
     Indication: Infection parasitic
     Route: 065
  2. DESMOPRESSIN [Concomitant]
     Active Substance: DESMOPRESSIN
  3. ENTECAVIR [Concomitant]
     Active Substance: ENTECAVIR
  4. TAMSULOSIN [Concomitant]
     Active Substance: TAMSULOSIN
  5. TIZANIDINE HYDROCHLORIDE [Concomitant]
     Active Substance: TIZANIDINE HYDROCHLORIDE
  6. VUMERITY CPD [Concomitant]

REACTIONS (7)
  - Tremor [Unknown]
  - Paraesthesia [Unknown]
  - Hypoaesthesia [Unknown]
  - Balance disorder [Unknown]
  - Gait disturbance [Unknown]
  - Urinary incontinence [Unknown]
  - Off label use [Unknown]
